FAERS Safety Report 4587419-3 (Version None)
Quarter: 2005Q1

REPORT INFORMATION
  Report Type: 
  Country: None (occurrence: None)
  Receive Date: 20050215
  Receipt Date: 20050207
  Transmission Date: 20050727
  Serious: Yes (Hospitalization, Disabling)
  Sender: FDA-Public Use
  Company Number: 2005022832

PATIENT
  Age: 55 Year
  Sex: Male
  Weight: 70 kg

DRUGS (3)
  1. ALDACTONE [Suspect]
     Indication: HYPERTENSION
     Dosage: SEE IMAGE
     Route: 048
     Dates: start: 20041102, end: 20041117
  2. ALDACTONE [Suspect]
     Indication: HYPERTENSION
     Dosage: SEE IMAGE
     Route: 048
     Dates: start: 20041117, end: 20050113
  3. PERINDOPRIL                       (PERINDOPRIL) [Concomitant]

REACTIONS (7)
  - BLOOD PRESSURE INCREASED [None]
  - CARDIAC OUTPUT DECREASED [None]
  - CEREBRAL INFARCTION [None]
  - DECREASED VENTRICULAR PRELOAD [None]
  - HEART RATE INCREASED [None]
  - VASODILATATION [None]
  - VOLUME BLOOD DECREASED [None]
